FAERS Safety Report 25624312 (Version 2)
Quarter: 2025Q3

REPORT INFORMATION
  Report Type: Spontaneous
  Country: JP (occurrence: JP)
  Receive Date: 20250730
  Receipt Date: 20250804
  Transmission Date: 20251021
  Serious: Yes (Other)
  Sender: PFIZER
  Company Number: JP-PFIZER INC-PV202500091352

PATIENT

DRUGS (2)
  1. ENSITRELVIR FUMARATE [Suspect]
     Active Substance: ENSITRELVIR FUMARATE
     Indication: COVID-19 treatment
     Route: 048
  2. BEPRIDIL [Suspect]
     Active Substance: BEPRIDIL
     Indication: Cardiac disorder
     Route: 048

REACTIONS (2)
  - Contraindicated product administered [Recovered/Resolved]
  - Electrocardiogram QT prolonged [Recovered/Resolved]
